FAERS Safety Report 9207853 (Version 1)
Quarter: 2013Q2

REPORT INFORMATION
  Report Type: Other
  Country: GB (occurrence: GB)
  Receive Date: 20130403
  Receipt Date: 20130403
  Transmission Date: 20140414
  Serious: Yes (Other)
  Sender: FDA-Public Use
  Company Number: GB-WATSON-2013-05388

PATIENT
  Sex: Male

DRUGS (1)
  1. DICLOFENAC SODIUM (UNKNOWN) [Suspect]
     Indication: PRODUCT USED FOR UNKNOWN INDICATION
     Dosage: 100 MG, UNKNOWN
     Route: 065

REACTIONS (6)
  - HIV infection [Recovering/Resolving]
  - Therapeutic response unexpected [Recovering/Resolving]
  - Gastrooesophageal reflux disease [Recovering/Resolving]
  - Blood iron abnormal [Recovering/Resolving]
  - Bladder disorder [Recovering/Resolving]
  - Haemorrhage [Recovering/Resolving]
